FAERS Safety Report 7781163-7 (Version None)
Quarter: 2011Q3

REPORT INFORMATION
  Report Type: 
  Country: None (occurrence: None)
  Receive Date: 20110927
  Receipt Date: 20110923
  Transmission Date: 20111222
  Serious: Yes (Death)
  Sender: FDA-Public Use
  Company Number: PHHY2011CR84528

PATIENT
  Age: 89 Year
  Sex: Male

DRUGS (5)
  1. PLAVIX [Concomitant]
     Dosage: UNK
  2. SULFASALAZINE [Concomitant]
     Dosage: UNK
  3. DORMICUN [Concomitant]
     Dosage: UNK
  4. HYPOGLYCEMIANT [Concomitant]
     Dosage: UNK
     Route: 048
  5. DIOVAN HCT [Suspect]
     Indication: HYPERTENSION
     Dosage: 320 MG OF VALS AND 25 MG OF HYD DAILY
     Route: 048

REACTIONS (4)
  - RECTAL HAEMORRHAGE [None]
  - COLITIS ULCERATIVE [None]
  - GASTRIC CANCER [None]
  - DIABETES MELLITUS [None]
